FAERS Safety Report 7194328-2 (Version None)
Quarter: 2010Q4

REPORT INFORMATION
  Report Type: 
  Country: None (occurrence: None)
  Receive Date: 20101223
  Receipt Date: 20101213
  Transmission Date: 20110411
  Serious: Yes (Hospitalization, Other)
  Sender: FDA-Public Use
  Company Number: US-ELI_LILLY_AND_COMPANY-US201012003408

PATIENT
  Age: 61 Year
  Sex: Male

DRUGS (8)
  1. CYMBALTA [Suspect]
     Indication: DEPRESSION
     Dosage: 120 MG, EACH MORNING
  2. GEMFIBROZIL [Concomitant]
  3. METFORMIN [Concomitant]
  4. GLIPIZIDE [Concomitant]
  5. LAMOTRIGINE [Concomitant]
  6. LISINOPRIL [Concomitant]
  7. VYTORIN [Concomitant]
  8. VITAMIN D [Concomitant]
     Dosage: 1.25 MG, WEEKLY (1/W)

REACTIONS (5)
  - DYSPHAGIA [None]
  - KNEE ARTHROPLASTY [None]
  - OROPHARYNGEAL PAIN [None]
  - TYPE 2 DIABETES MELLITUS [None]
  - VOCAL CORD NEOPLASM [None]
